FAERS Safety Report 20991624 (Version 3)
Quarter: 2022Q3

REPORT INFORMATION
  Report Type: Other
  Country: US (occurrence: None)
  Receive Date: 20220622
  Receipt Date: 20220705
  Transmission Date: 20221027
  Serious: Yes (Death)
  Sender: FDA-Public Use
  Company Number: US-ROCHE-3119302

PATIENT
  Sex: Male
  Weight: 28 kg

DRUGS (6)
  1. EVRYSDI [Suspect]
     Active Substance: RISDIPLAM
     Indication: Neuromyopathy
     Dosage: TAKE 6.6ML (5MG) BY G-TUBE DAILY
     Route: 065
  2. EVRYSDI [Suspect]
     Active Substance: RISDIPLAM
  3. EVRYSDI [Suspect]
     Active Substance: RISDIPLAM
  4. EVRYSDI [Suspect]
     Active Substance: RISDIPLAM
  5. EVRYSDI [Suspect]
     Active Substance: RISDIPLAM
  6. SPINRAZA [Concomitant]
     Active Substance: NUSINERSEN
     Indication: Spinal muscular atrophy
     Dates: end: 20200209

REACTIONS (1)
  - Death [Fatal]
